FAERS Safety Report 20226662 (Version 1)
Quarter: 2021Q4

REPORT INFORMATION
  Report Type: Report from Study
  Country: JP (occurrence: JP)
  Receive Date: 20211224
  Receipt Date: 20211224
  Transmission Date: 20220303
  Serious: Yes (Other)
  Sender: FDA-Public Use
  Company Number: JP-VIIV HEALTHCARE LIMITED-JP2020JPN010863

PATIENT
  Age: 30 Year
  Sex: Male

DRUGS (3)
  1. DOLUTEGRAVIR [Suspect]
     Active Substance: DOLUTEGRAVIR
     Indication: HIV infection
     Dosage: 50 MG, 1D
     Route: 048
     Dates: start: 20181112
  2. DESCOVY [Suspect]
     Active Substance: EMTRICITABINE\TENOFOVIR ALAFENAMIDE FUMARATE
     Indication: HIV infection
     Dosage: 1 DF, 1D
     Route: 048
     Dates: start: 20181112
  3. BILASTINE [Concomitant]
     Active Substance: BILASTINE
     Dosage: UNK
     Dates: start: 20190205

REACTIONS (7)
  - Abdominal distension [Recovering/Resolving]
  - Insomnia [Recovering/Resolving]
  - Depressive symptom [Recovering/Resolving]
  - Rash [Recovering/Resolving]
  - Nausea [Recovering/Resolving]
  - Anogenital warts [Recovering/Resolving]
  - Syphilis [Recovering/Resolving]

NARRATIVE: CASE EVENT DATE: 20181112
